FAERS Safety Report 9057907 (Version 1)
Quarter: 2013Q1

REPORT INFORMATION
  Report Type: Report from Study
  Country: GB (occurrence: GB)
  Receive Date: 20130210
  Receipt Date: 20130210
  Transmission Date: 20140127
  Serious: Yes (Other)
  Sender: FDA-Public Use
  Company Number: GB-TEVA-2010004530

PATIENT
  Age: 73 None
  Sex: Male
  Weight: 86.3 kg

DRUGS (4)
  1. TREANDA [Suspect]
     Route: 042
     Dates: start: 20100622, end: 20100730
  2. RITUXIMAB [Suspect]
     Dosage: 975 MILLIGRAM DAILY;
     Route: 042
     Dates: start: 20100622, end: 20100723
  3. WARFARIN [Concomitant]
     Dates: start: 200912, end: 20100730
  4. G-CSF [Concomitant]
     Dates: start: 20100727, end: 20100729

REACTIONS (1)
  - Idiopathic thrombocytopenic purpura [Recovering/Resolving]
